FAERS Safety Report 11058177 (Version 2)
Quarter: 2015Q3

REPORT INFORMATION
  Report Type: Spontaneous
  Country: US (occurrence: US)
  Receive Date: 20150423
  Receipt Date: 20150820
  Transmission Date: 20151125
  Serious: Yes (Life-Threatening, Hospitalization, Disabling)
  Sender: FDA-Public Use
  Company Number: US-BAYER-2015-137868

PATIENT
  Age: 28 Year
  Sex: Female
  Weight: 56.69 kg

DRUGS (6)
  1. CALCIUM [CALCIUM] [Concomitant]
     Active Substance: CALCIUM
     Dosage: 500 MG, QD
     Route: 048
     Dates: start: 20120807
  2. MIRENA [Suspect]
     Active Substance: LEVONORGESTREL
     Indication: CONTRACEPTION
     Dosage: 20 MCG/24HR, CONT
     Route: 015
     Dates: start: 20120515, end: 20121017
  3. DULCOLAX (BISACODYL) [Concomitant]
     Active Substance: BISACODYL
     Dosage: 5 MG, PRN, EVERY 24 HOURS
     Route: 048
     Dates: start: 20121004
  4. CALCIUM [CALCIUM] [Concomitant]
     Active Substance: CALCIUM
     Dosage: 500 MG, QD
     Route: 048
     Dates: start: 20121004
  5. DULCOLAX (BISACODYL) [Concomitant]
     Active Substance: BISACODYL
     Dosage: 5 MG, PRN, EVERY 24 HOURS
     Route: 048
     Dates: start: 20120807
  6. PRENATAL VITAMINS [VIT C,B5,B12,D2,B3,B6,RETINOL PALMIT,B2,B1 MONO [Concomitant]
     Dosage: 1 DAILY
     Route: 048
     Dates: start: 20120807

REACTIONS (11)
  - Uterine perforation [None]
  - Vaginal haemorrhage [None]
  - Emotional distress [None]
  - Injury [None]
  - Pelvic pain [None]
  - Anhedonia [None]
  - Device dislocation [None]
  - Balance disorder [None]
  - General physical health deterioration [None]
  - Anxiety [None]
  - High risk pregnancy [None]

NARRATIVE: CASE EVENT DATE: 20120809
